FAERS Safety Report 9239903 (Version 1)
Quarter: 2013Q2

REPORT INFORMATION
  Report Type: Report from Study
  Country: DE (occurrence: DE)
  Receive Date: 20130418
  Receipt Date: 20130418
  Transmission Date: 20140414
  Serious: Yes (Life-Threatening, Hospitalization)
  Sender: FDA-Public Use
  Company Number: DE-ROCHE-1215111

PATIENT
  Age: 50 Year
  Sex: Male
  Weight: 100.5 kg

DRUGS (5)
  1. TRASTUZUMAB [Suspect]
     Indication: OESOPHAGEAL ADENOCARCINOMA METASTATIC
     Route: 042
     Dates: start: 20130403
  2. 5-FU [Suspect]
     Indication: OESOPHAGEAL ADENOCARCINOMA METASTATIC
     Route: 042
     Dates: start: 20130403, end: 20130407
  3. CISPLATIN [Concomitant]
     Route: 042
     Dates: start: 20130403
  4. FORTECORTIN (GERMANY) [Concomitant]
     Route: 042
     Dates: start: 20130403
  5. KEVATRIL [Concomitant]
     Route: 042
     Dates: start: 20130403

REACTIONS (1)
  - Acute myocardial infarction [Not Recovered/Not Resolved]
